FAERS Safety Report 12840249 (Version 4)
Quarter: 2018Q2

REPORT INFORMATION
  Report Type: Spontaneous
  Country: US (occurrence: US)
  Receive Date: 20161012
  Receipt Date: 20180418
  Transmission Date: 20180711
  Serious: No
  Sender: FDA-Public Use
  Company Number: US-TEVA-701855USA

PATIENT
  Age: 57 Year
  Sex: Female

DRUGS (25)
  1. SUMATRIPTAN. [Concomitant]
     Active Substance: SUMATRIPTAN
     Dates: start: 20170208
  2. RANITIDINE. [Concomitant]
     Active Substance: RANITIDINE
  3. CLONAZEPAM. [Concomitant]
     Active Substance: CLONAZEPAM
     Dates: start: 20150519
  4. QUETIAPINE. [Concomitant]
     Active Substance: QUETIAPINE
     Dates: start: 20170313
  5. LORATADINE. [Concomitant]
     Active Substance: LORATADINE
     Dates: start: 20170703
  6. SULFASALAZINE. [Concomitant]
     Active Substance: SULFASALAZINE
     Dates: start: 20170703
  7. CEPHALEXIN. [Concomitant]
     Active Substance: CEPHALEXIN
     Dosage: FOR 10 DAYS
     Dates: start: 20170703
  8. WAL-DRYL [Concomitant]
     Active Substance: DIPHENHYDRAMINE HYDROCHLORIDE
  9. ZOLOFT [Concomitant]
     Active Substance: SERTRALINE HYDROCHLORIDE
     Dates: start: 20150519, end: 20151217
  10. LORAZEPAM. [Concomitant]
     Active Substance: LORAZEPAM
     Dates: start: 20170703, end: 20170703
  11. TRAZODONE [Concomitant]
     Active Substance: TRAZODONE HYDROCHLORIDE
     Dates: start: 20150519
  12. AMLODIPINE [Concomitant]
     Active Substance: AMLODIPINE BESYLATE
     Dates: start: 20150519
  13. ORPHENADRINE [Concomitant]
     Active Substance: ORPHENADRINE
  14. GABAPENTIN. [Concomitant]
     Active Substance: GABAPENTIN
     Dates: start: 20160505
  15. DULOXETINE. [Concomitant]
     Active Substance: DULOXETINE
     Dates: start: 20151217
  16. LISINOPRIL. [Concomitant]
     Active Substance: LISINOPRIL
     Dates: start: 20150519
  17. VITAMIN C [Concomitant]
     Active Substance: ASCORBIC ACID
  18. COPAXONE [Suspect]
     Active Substance: GLATIRAMER ACETATE
     Indication: MULTIPLE SCLEROSIS
     Dosage: PFS
     Route: 058
     Dates: start: 20150520
  19. MECLIZINE [Concomitant]
     Active Substance: MECLIZINE HYDROCHLORIDE
  20. PRAVASTATIN. [Concomitant]
     Active Substance: PRAVASTATIN
     Dates: start: 20151217
  21. BACLOFEN. [Concomitant]
     Active Substance: BACLOFEN
     Dates: start: 20170721
  22. DOCUSATE [Concomitant]
     Active Substance: DOCUSATE
     Dates: start: 20151217
  23. CLONIDINE. [Concomitant]
     Active Substance: CLONIDINE
     Dosage: 0.1/24 HR
     Dates: start: 20150519
  24. SUMATRIPTAN. [Concomitant]
     Active Substance: SUMATRIPTAN
     Dates: start: 20170208, end: 20170208
  25. TRAMADOL. [Concomitant]
     Active Substance: TRAMADOL
     Dates: start: 20170602

REACTIONS (11)
  - Headache [Not Recovered/Not Resolved]
  - Urticaria [Recovered/Resolved]
  - Dyspnoea [Unknown]
  - Injection site erythema [Recovered/Resolved]
  - Movement disorder [Not Recovered/Not Resolved]
  - Injection site pain [Not Recovered/Not Resolved]
  - Injection site pruritus [Recovered/Resolved]
  - Injection site mass [Not Recovered/Not Resolved]
  - Hypersensitivity [Recovered/Resolved]
  - Rash [Recovered/Resolved]
  - Injection site swelling [Recovered/Resolved]

NARRATIVE: CASE EVENT DATE: 2016
